FAERS Safety Report 5772754-3 (Version None)
Quarter: 2008Q2

REPORT INFORMATION
  Report Type: 
  Country: None (occurrence: None)
  Receive Date: 20080601
  Receipt Date: 20080317
  Transmission Date: 20081010
  Serious: No
  Sender: FDA-Public Use
  Company Number: US200803004111

PATIENT
  Age: 68 Year
  Sex: Female

DRUGS (13)
  1. BYETTA [Suspect]
     Indication: TYPE 2 DIABETES MELLITUS
     Dosage: 5 UG, 2/D, SUBCUTANEOUS
     Route: 058
     Dates: start: 20071201
  2. NARDIL [Concomitant]
  3. ASPIRIN [Concomitant]
  4. TRIAMTERENE (TRIAMTERENE) [Concomitant]
  5. ZETIA [Concomitant]
  6. EVISTA [Concomitant]
  7. PROCHLORPERAZINE MALEATE [Concomitant]
  8. MELOXICAM [Concomitant]
  9. METFORMIN HCL [Concomitant]
  10. GLYBURIDE [Concomitant]
  11. OXAZEPAM [Concomitant]
  12. VITAMIN B12 [Concomitant]
  13. PANTOPRAZOLE SODIUM [Concomitant]

REACTIONS (2)
  - BLOOD GLUCOSE INCREASED [None]
  - SOMNOLENCE [None]
